FAERS Safety Report 13921039 (Version 4)
Quarter: 2017Q4

REPORT INFORMATION
  Report Type: Report from Study
  Country: DE (occurrence: DE)
  Receive Date: 20170830
  Receipt Date: 20171128
  Transmission Date: 20180320
  Serious: Yes (Life-Threatening)
  Sender: FDA-Public Use
  Company Number: PHHO2017DE012339

PATIENT
  Age: 20 Year
  Sex: Male
  Weight: 76 kg

DRUGS (4)
  1. INC424 [Suspect]
     Active Substance: RUXOLITINIB
     Indication: ACUTE GRAFT VERSUS HOST DISEASE
     Dosage: 10 MG, BID
     Route: 048
     Dates: start: 20170817
  2. PREDNISOLONE. [Suspect]
     Active Substance: PREDNISOLONE
     Indication: GRAFT VERSUS HOST DISEASE
     Dosage: UNK
     Route: 065
  3. TACROLIMUS. [Suspect]
     Active Substance: TACROLIMUS
     Indication: GRAFT VERSUS HOST DISEASE
     Dosage: PRN
     Route: 065
     Dates: start: 20170815
  4. FOSCARNET [Concomitant]
     Active Substance: FOSCARNET
     Indication: ACUTE GRAFT VERSUS HOST DISEASE
     Dosage: 2630 MG, BID
     Route: 042
     Dates: start: 20170822

REACTIONS (1)
  - Respiratory failure [Recovered/Resolved]

NARRATIVE: CASE EVENT DATE: 20170824
